FAERS Safety Report 4955349-0 (Version None)
Quarter: 2006Q1

REPORT INFORMATION
  Report Type: 
  Country: None (occurrence: None)
  Receive Date: 20060328
  Receipt Date: 20060316
  Transmission Date: 20060701
  Serious: Yes (Hospitalization)
  Sender: FDA-Public Use
  Company Number: PHNU2006PL01356

PATIENT
  Age: 46 Year
  Sex: Female
  Weight: 65 kg

DRUGS (3)
  1. SANDIMMUNE [Suspect]
     Indication: RENAL TRANSPLANT
     Dosage: 175 MG DAILY
     Route: 048
     Dates: start: 20050419
  2. MYFORTIC [Concomitant]
     Indication: RENAL TRANSPLANT
  3. ENCORTON [Concomitant]
     Indication: RENAL TRANSPLANT

REACTIONS (2)
  - BLOOD AMYLASE INCREASED [None]
  - TRANSAMINASES INCREASED [None]
